FAERS Safety Report 7392676-4 (Version None)
Quarter: 2011Q1

REPORT INFORMATION
  Report Type: 
  Country: None (occurrence: None)
  Receive Date: 20110330
  Receipt Date: 20110330
  Transmission Date: 20110831
  Serious: Yes (Life-Threatening)
  Sender: FDA-Public Use
  Company Number: None

PATIENT
  Age: 64 Year
  Sex: Male
  Weight: 86.1834 kg

DRUGS (2)
  1. ZYRTEC [Suspect]
     Indication: HYPERSENSITIVITY
     Dosage: 1 IN 24 HOURS ONE IN 24 HOURS PO DAILY
     Route: 048
     Dates: start: 20110217, end: 20110222
  2. ZYRTEC [Suspect]
     Indication: HYPERSENSITIVITY
     Dosage: 1 IN 24 HOURS ONE IN 24 HOURS PO DAILY
     Route: 048
     Dates: start: 20110222, end: 20110222

REACTIONS (2)
  - BLOOD PRESSURE INCREASED [None]
  - HEART RATE INCREASED [None]
